FAERS Safety Report 25120633 (Version 1)
Quarter: 2025Q1

REPORT INFORMATION
  Report Type: Spontaneous
  Country: US (occurrence: US)
  Receive Date: 20250325
  Receipt Date: 20250325
  Transmission Date: 20250408
  Serious: Yes (Hospitalization, Other)
  Sender: SANOFI AVENTIS
  Company Number: US-DialogSolutions-SAAVPROD-PI748028-C1

PATIENT
  Age: 73 Year
  Sex: Male

DRUGS (2)
  1. ALEMTUZUMAB [Suspect]
     Active Substance: ALEMTUZUMAB
     Indication: Multiple sclerosis
  2. CLOPIDOGREL [Concomitant]
     Active Substance: CLOPIDOGREL BISULFATE

REACTIONS (2)
  - Immune thrombocytopenia [Recovering/Resolving]
  - Purpura [Recovering/Resolving]
